FAERS Safety Report 17128868 (Version 1)
Quarter: 2019Q4

REPORT INFORMATION
  Report Type: Spontaneous
  Country: US (occurrence: US)
  Receive Date: 20191207
  Receipt Date: 20191207
  Transmission Date: 20200122
  Serious: No
  Sender: FDA-Public Use
  Company Number: None

PATIENT
  Age: 32 Year
  Sex: Female
  Weight: 78.75 kg

DRUGS (4)
  1. CYMBALTA [Concomitant]
     Active Substance: DULOXETINE HYDROCHLORIDE
  2. EMGALITY [Suspect]
     Active Substance: GALCANEZUMAB-GNLM
     Indication: MIGRAINE
     Dosage: ?          QUANTITY:1 INJECTION(S);OTHER FREQUENCY:MONTHLY;OTHER ROUTE:SUBCUTANEOUS INJECTION?
     Route: 058
     Dates: start: 20190516
  3. LAMICTAL [Concomitant]
     Active Substance: LAMOTRIGINE
  4. WELLBUTRIN [Concomitant]
     Active Substance: BUPROPION HYDROCHLORIDE

REACTIONS (6)
  - Injection site induration [None]
  - Injection site reaction [None]
  - Injection site swelling [None]
  - Injection site erythema [None]
  - Injection site pruritus [None]
  - Drug ineffective [None]

NARRATIVE: CASE EVENT DATE: 20191206
